FAERS Safety Report 18337670 (Version 1)
Quarter: 2020Q4

REPORT INFORMATION
  Report Type: Spontaneous
  Country: DE (occurrence: DE)
  Receive Date: 20201002
  Receipt Date: 20201002
  Transmission Date: 20210113
  Serious: Yes (Other)
  Sender: FDA-Public Use
  Company Number: DE-TEVA-2020-DE-1833010

PATIENT
  Age: 44 Year
  Sex: Male

DRUGS (1)
  1. FINASTERID ABZ [Suspect]
     Active Substance: FINASTERIDE
     Indication: ALOPECIA
     Dosage: 1.25 MILLIGRAM DAILY;
     Route: 048
     Dates: start: 201002, end: 201708

REACTIONS (39)
  - Erectile dysfunction [Unknown]
  - Anhedonia [Unknown]
  - Fatigue [Unknown]
  - Penile pain [Unknown]
  - Testicular atrophy [Unknown]
  - Thinking abnormal [Unknown]
  - Muscle twitching [Unknown]
  - Listless [Unknown]
  - Dyspepsia [Unknown]
  - Depression [Unknown]
  - Mood swings [Unknown]
  - Sleep disorder [Unknown]
  - Muscular weakness [Unknown]
  - Loss of libido [Unknown]
  - Feeling cold [Unknown]
  - Memory impairment [Unknown]
  - Headache [Unknown]
  - Post 5-alpha-reductase inhibitor syndrome [Unknown]
  - Post micturition dribble [Unknown]
  - Suicidal ideation [Unknown]
  - Disturbance in attention [Unknown]
  - Ejaculation failure [Unknown]
  - Testicular pain [Unknown]
  - Penile discomfort [Unknown]
  - Penile size reduced [Unknown]
  - Anxiety [Unknown]
  - Organic erectile dysfunction [Unknown]
  - Genital hypoaesthesia [Unknown]
  - Panic attack [Unknown]
  - Aphasia [Unknown]
  - Ejaculation disorder [Unknown]
  - Prostatic pain [Unknown]
  - Apathy [Unknown]
  - Myalgia [Unknown]
  - Disturbance in sexual arousal [Unknown]
  - Anorgasmia [Unknown]
  - Hyperhidrosis [Unknown]
  - Hypohidrosis [Unknown]
  - Pollakiuria [Unknown]

NARRATIVE: CASE EVENT DATE: 2016
